FAERS Safety Report 9277121 (Version 1)
Quarter: 2013Q2

REPORT INFORMATION
  Report Type: Report from Study
  Country: JP (occurrence: JP)
  Receive Date: 20130507
  Receipt Date: 20130507
  Transmission Date: 20140414
  Serious: Yes (Hospitalization, Other)
  Sender: FDA-Public Use
  Company Number: PHHY2012JP088303

PATIENT
  Age: 61 Year
  Sex: Male
  Weight: 60 kg

DRUGS (18)
  1. AFINITOR [Suspect]
     Indication: METASTATIC RENAL CELL CARCINOMA
     Dosage: 10 MG, DAILY
     Route: 048
     Dates: start: 20101208, end: 20101221
  2. AFINITOR [Suspect]
     Dosage: 5 MG, DAILY
     Route: 048
     Dates: start: 20110106, end: 20110223
  3. AFINITOR [Suspect]
     Dosage: 5 MG, DAILY
     Route: 048
     Dates: start: 20110301, end: 20110308
  4. AFINITOR [Suspect]
     Dosage: 5 MG, DAILY
     Route: 048
     Dates: start: 20110315, end: 20110821
  5. INTERFERON ALFA [Concomitant]
     Indication: METASTATIC RENAL CELL CARCINOMA
     Dates: start: 20050919, end: 20090318
  6. TECELEUKIN [Concomitant]
     Indication: METASTATIC RENAL CELL CARCINOMA
     Dates: start: 20090319, end: 20091104
  7. SORAFENIB TOSILATE [Concomitant]
     Indication: METASTATIC RENAL CELL CARCINOMA
     Dates: start: 20091105, end: 20091129
  8. ACUATIM [Concomitant]
     Dates: start: 20101210, end: 20101217
  9. HIRUDOID [Concomitant]
     Dates: start: 20101206, end: 20101217
  10. CONIEL [Concomitant]
  11. LOXONIN [Concomitant]
     Indication: METASTATIC RENAL CELL CARCINOMA
  12. RED BLOOD CELLS, CONCENTRATED [Concomitant]
     Dates: start: 20110105, end: 20110105
  13. CALONAL [Concomitant]
     Indication: METASTATIC RENAL CELL CARCINOMA
     Dates: start: 20110517
  14. PURSENNID                               /SCH/ [Concomitant]
     Dates: start: 20110603
  15. OXYCONTIN [Concomitant]
     Route: 048
     Dates: start: 20110603
  16. OXINORM [Concomitant]
     Indication: METASTATIC RENAL CELL CARCINOMA
     Dates: start: 20110604
  17. MEIACT [Concomitant]
     Dates: start: 20110609, end: 20110614
  18. GENTACIN [Concomitant]
     Dosage: 1 G, UNK

REACTIONS (23)
  - Pleural effusion [Recovered/Resolved]
  - Oedema peripheral [Recovered/Resolved]
  - Metastatic renal cell carcinoma [Not Recovered/Not Resolved]
  - Malignant neoplasm progression [Not Recovered/Not Resolved]
  - Haemoglobin decreased [Unknown]
  - C-reactive protein increased [Recovering/Resolving]
  - Tinnitus [Recovered/Resolved]
  - Blood creatinine increased [Not Recovered/Not Resolved]
  - Rash [Not Recovered/Not Resolved]
  - Stomatitis [Recovered/Resolved]
  - Dyspnoea [Unknown]
  - Protein total decreased [Unknown]
  - Blood cholesterol increased [Unknown]
  - Eosinophil count increased [Unknown]
  - Platelet count decreased [Unknown]
  - Platelet count increased [Unknown]
  - Blood glucose increased [Unknown]
  - Gamma-glutamyltransferase increased [Unknown]
  - Blood alkaline phosphatase increased [Unknown]
  - Blood lactate dehydrogenase increased [Unknown]
  - Blood bilirubin decreased [Unknown]
  - Blood urea increased [Unknown]
  - Blood uric acid increased [Unknown]
